FAERS Safety Report 11248107 (Version 1)
Quarter: 2015Q3

REPORT INFORMATION
  Report Type: Spontaneous
  Country: GB (occurrence: GB)
  Receive Date: 20150708
  Receipt Date: 20150708
  Transmission Date: 20151125
  Serious: Yes (Death, Life-Threatening, Hospitalization)
  Sender: FDA-Public Use
  Company Number: GB-FRESENIUS KABI-FK201503161

PATIENT
  Age: 29 Year
  Sex: Male

DRUGS (8)
  1. DEXAMETHASONE INJECTION (MANUFACTURER UNKNOWN) [Suspect]
     Active Substance: DEXAMETHASONE
     Indication: PARAESTHESIA
     Route: 065
     Dates: start: 200912
  2. DEXAMETHASONE INJECTION (MANUFACTURER UNKNOWN) [Suspect]
     Active Substance: DEXAMETHASONE
     Indication: SPINAL DECOMPRESSION
     Route: 065
     Dates: start: 201009
  3. DEXAMETHASONE INJECTION (MANUFACTURER UNKNOWN) [Suspect]
     Active Substance: DEXAMETHASONE
     Indication: HEADACHE
     Route: 065
     Dates: start: 201101
  4. DEXAMETHASONE INJECTION (MANUFACTURER UNKNOWN) [Suspect]
     Active Substance: DEXAMETHASONE
     Indication: HOSPICE CARE
     Route: 065
     Dates: start: 201105, end: 201107
  5. DEXAMETHASONE INJECTION (MANUFACTURER UNKNOWN) [Suspect]
     Active Substance: DEXAMETHASONE
     Indication: PARAESTHESIA
     Route: 065
     Dates: start: 201001
  6. DEXAMETHASONE INJECTION (MANUFACTURER UNKNOWN) [Suspect]
     Active Substance: DEXAMETHASONE
     Indication: MENINGIOMA
     Route: 065
     Dates: start: 201102
  7. DEXAMETHASONE INJECTION (MANUFACTURER UNKNOWN) [Suspect]
     Active Substance: DEXAMETHASONE
     Indication: EPIDURAL LIPOMATOSIS
     Route: 065
     Dates: start: 201110
  8. DEXAMETHASONE INJECTION (MANUFACTURER UNKNOWN) [Suspect]
     Active Substance: DEXAMETHASONE
     Indication: RADIOTHERAPY TO BRAIN
     Route: 065
     Dates: start: 201104

REACTIONS (3)
  - Epidural lipomatosis [Fatal]
  - Spinal cord compression [Recovering/Resolving]
  - Sepsis [Recovering/Resolving]
